FAERS Safety Report 14283292 (Version 8)
Quarter: 2021Q4

REPORT INFORMATION
  Report Type: Report from Study
  Country: CO (occurrence: CO)
  Receive Date: 20171213
  Receipt Date: 20211124
  Transmission Date: 20220303
  Serious: Yes (Life-Threatening, Hospitalization, Other)
  Sender: FDA-Public Use
  Company Number: CO-GLAXOSMITHKLINE-CO2017GSK190791

PATIENT
  Sex: Female
  Weight: 160 kg

DRUGS (17)
  1. DICLOFENAC [Suspect]
     Active Substance: DICLOFENAC
     Indication: Product used for unknown indication
     Dosage: UNK
     Route: 065
  2. AFINITOR [Suspect]
     Active Substance: EVEROLIMUS
     Indication: Renal cell carcinoma
     Dosage: 10 MG, QD
     Route: 048
     Dates: start: 20151217
  3. AFINITOR [Suspect]
     Active Substance: EVEROLIMUS
     Indication: Breast cancer
  4. GLYBURIDE [Suspect]
     Active Substance: GLYBURIDE
     Indication: Blood glucose abnormal
     Dosage: 5 MG, TID
     Route: 048
  5. LOSARTAN [Suspect]
     Active Substance: LOSARTAN
     Indication: Blood pressure abnormal
     Dosage: 50 MG, QD
     Route: 048
  6. ACETAMINOPHEN [Concomitant]
     Active Substance: ACETAMINOPHEN
     Indication: Pain
     Dosage: UNK, PRN
     Route: 048
  7. ASPIRIN [Concomitant]
     Active Substance: ASPIRIN
     Indication: Product used for unknown indication
     Dosage: UNK
     Route: 065
  8. DOLEX (CLONIXIN LYSINE) [Concomitant]
     Indication: Product used for unknown indication
     Dosage: UNK
     Route: 065
  9. EXEMESTANE [Concomitant]
     Active Substance: EXEMESTANE
     Indication: Breast cancer
     Dosage: 25 MG, QD
     Route: 065
  10. EXEMESTANE [Concomitant]
     Active Substance: EXEMESTANE
     Dosage: 150 MG, QD
     Route: 048
  11. FUROSEMIDE [Concomitant]
     Active Substance: FUROSEMIDE
     Indication: Product used for unknown indication
     Dosage: UNK
     Route: 065
  12. GENOPRAZOL [Concomitant]
     Indication: Product used for unknown indication
     Dosage: UNK
     Route: 065
  13. GLUCERNA [Concomitant]
     Active Substance: AMINO ACIDS\DEXTROSE\ELECTROLYTES NOS\SOYBEAN OIL\VITAMINS
     Indication: Product used for unknown indication
     Dosage: UNK
     Route: 065
  14. INSULIN NOS [Concomitant]
     Active Substance: INSULIN NOS
     Indication: Product used for unknown indication
     Dosage: UNK
     Route: 065
  15. JANUMET [Concomitant]
     Active Substance: METFORMIN HYDROCHLORIDE\SITAGLIPTIN PHOSPHATE
     Indication: Product used for unknown indication
     Dosage: UNK
     Route: 065
  16. LYRICA [Concomitant]
     Active Substance: PREGABALIN
     Indication: Product used for unknown indication
     Dosage: UNK
     Route: 065
  17. NORVIR [Concomitant]
     Active Substance: RITONAVIR
     Indication: Product used for unknown indication
     Dosage: UNK
     Route: 065

REACTIONS (68)
  - Back injury [Unknown]
  - Breast cancer [Unknown]
  - Breast cancer recurrent [Unknown]
  - Choking [Unknown]
  - Deafness [Unknown]
  - Dizziness [Unknown]
  - Fall [Unknown]
  - Feeling abnormal [Recovering/Resolving]
  - Haemorrhage [Unknown]
  - Head injury [Unknown]
  - Joint injury [Unknown]
  - Malignant neoplasm progression [Unknown]
  - Metastases to lung [Unknown]
  - Onychalgia [Unknown]
  - Pruritus [Unknown]
  - Renal cancer recurrent [Unknown]
  - Traumatic lung injury [Unknown]
  - Venous valve ruptured [Unknown]
  - Abdominal discomfort [Unknown]
  - Abdominal pain [Unknown]
  - Abdominal pain upper [Unknown]
  - Agitation [Unknown]
  - Alopecia [Unknown]
  - Arthralgia [Unknown]
  - Asthenia [Unknown]
  - Back pain [Unknown]
  - Blood glucose increased [Unknown]
  - Bone pain [Unknown]
  - Chest pain [Unknown]
  - Cough [Unknown]
  - Disorientation [Unknown]
  - Depressed mood [Unknown]
  - Dysphonia [Unknown]
  - Dyspnoea [Unknown]
  - Eating disorder [Unknown]
  - Gait disturbance [Unknown]
  - General physical health deterioration [Unknown]
  - Headache [Unknown]
  - Hypoacusis [Unknown]
  - Insomnia [Unknown]
  - Influenza [Not Recovered/Not Resolved]
  - Inflammation [Unknown]
  - Joint swelling [Unknown]
  - Lung disorder [Unknown]
  - Malaise [Unknown]
  - Memory impairment [Unknown]
  - Mood altered [Unknown]
  - Musculoskeletal chest pain [Unknown]
  - Nervous system disorder [Unknown]
  - Nodule [Unknown]
  - Oropharyngeal pain [Unknown]
  - Pigmentation disorder [Unknown]
  - Pain in extremity [Unknown]
  - Pain [Unknown]
  - Peripheral swelling [Unknown]
  - Product supply issue [Unknown]
  - Productive cough [Unknown]
  - Pyrexia [Unknown]
  - Skeletal injury [Unknown]
  - Skin discolouration [Unknown]
  - Swelling face [Unknown]
  - Stomatitis [Unknown]
  - Tinnitus [Unknown]
  - Underweight [Unknown]
  - Varicose vein [Unknown]
  - Vomiting [Unknown]
  - Vulvovaginal inflammation [Unknown]
  - Weight decreased [Unknown]

NARRATIVE: CASE EVENT DATE: 20150101
